FAERS Safety Report 6089565-4 (Version None)
Quarter: 2009Q1

REPORT INFORMATION
  Report Type: 
  Country: None (occurrence: None)
  Receive Date: 20090224
  Receipt Date: 20090224
  Transmission Date: 20090719
  Serious: Yes (Other)
  Sender: FDA-Public Use
  Company Number: IT-PURDUE-USA_2009_0037025

PATIENT
  Age: 22 Year
  Sex: Female

DRUGS (2)
  1. NON-PMN MORPHINE SULFATE [Suspect]
     Dosage: 20 MCG/KG, Q1H
     Route: 042
  2. DIMETHYL SULFOXIDE [Suspect]
     Indication: CRYOTHERAPY
     Dosage: 444 MCG/KG, UNK

REACTIONS (3)
  - DRUG INTERACTION [None]
  - RESPIRATORY DEPRESSION [None]
  - SOMNOLENCE [None]
